FAERS Safety Report 14623559 (Version 2)
Quarter: 2018Q4

REPORT INFORMATION
  Report Type: Spontaneous
  Country: IT (occurrence: IT)
  Receive Date: 20180312
  Receipt Date: 20181017
  Transmission Date: 20190204
  Serious: Yes (Death, Other)
  Sender: FDA-Public Use
  Company Number: IT-AUROBINDO-AUR-APL-2018-012826

PATIENT
  Sex: Female

DRUGS (9)
  1. VANCOMYCIN HYDROCHLORIDE. [Suspect]
     Active Substance: VANCOMYCIN HYDROCHLORIDE
     Indication: STAPHYLOCOCCAL INFECTION
  2. MEROPENEM. [Suspect]
     Active Substance: MEROPENEM
     Indication: STAPHYLOCOCCAL INFECTION
  3. TIGECYCLINE. [Suspect]
     Active Substance: TIGECYCLINE
     Indication: BACTERIAL INFECTION
  4. MUPIROCIN. [Suspect]
     Active Substance: MUPIROCIN
     Indication: BACTERIAL INFECTION
  5. TIGECYCLINE. [Suspect]
     Active Substance: TIGECYCLINE
     Indication: EVIDENCE BASED TREATMENT
  6. MEROPENEM. [Suspect]
     Active Substance: MEROPENEM
     Indication: ESCHERICHIA INFECTION
  7. TEICOPLANIN [Suspect]
     Active Substance: TEICOPLANIN
     Indication: PRODUCT USED FOR UNKNOWN INDICATION
  8. VANCOMYCIN HYDROCHLORIDE. [Suspect]
     Active Substance: VANCOMYCIN HYDROCHLORIDE
     Indication: ESCHERICHIA INFECTION
  9. CIPROFLOXACIN. [Suspect]
     Active Substance: CIPROFLOXACIN
     Indication: EVIDENCE BASED TREATMENT

REACTIONS (1)
  - Pathogen resistance [Fatal]
